FAERS Safety Report 7137509-6 (Version None)
Quarter: 2010Q4

REPORT INFORMATION
  Report Type: 
  Country: None (occurrence: None)
  Receive Date: 20101206
  Receipt Date: 20101201
  Transmission Date: 20110411
  Serious: Yes (Hospitalization)
  Sender: FDA-Public Use
  Company Number: US-BRISTOL-MYERS SQUIBB COMPANY-15416134

PATIENT
  Age: 82 Year
  Sex: Male
  Weight: 87 kg

DRUGS (1)
  1. COUMADIN [Suspect]
     Dosage: 1DF=11MG ON MON,THU AND SAT AND 10MG ON OTHER DAYS COUMADIN TAKEN FOR 4 TO 5 YRS

REACTIONS (1)
  - MYOCARDIAL INFARCTION [None]
